FAERS Safety Report 5631264-4 (Version None)
Quarter: 2008Q1

REPORT INFORMATION
  Report Type: 
  Country: None (occurrence: None)
  Receive Date: 20080213
  Receipt Date: 20080204
  Transmission Date: 20080703
  Serious: Yes (Death)
  Sender: FDA-Public Use
  Company Number: 2008-01063

PATIENT
  Age: 51 Year
  Sex: Male

DRUGS (7)
  1. FIORICET [Suspect]
  2. IBUPROFEN TABLETS [Suspect]
  3. CHLORDIAZEPOXIDE/AMITRIPTYLINE HCL (UNKNOWN STRENGTH) (WATSON)(AMITRIP [Suspect]
  4. DIHYDROCODEINE BITARTRATE INJ [Suspect]
  5. BENZODIAZEPINE() [Suspect]
  6. ETHANOL(ETHANOL) [Suspect]
  7. CAFFEINE CITRATE [Suspect]

REACTIONS (1)
  - DEATH [None]
